FAERS Safety Report 8577748-0 (Version None)
Quarter: 2012Q3

REPORT INFORMATION
  Report Type: 
  Country: None (occurrence: None)
  Receive Date: 20120808
  Receipt Date: 20120725
  Transmission Date: 20120928
  Serious: Yes (Hospitalization, Other)
  Sender: FDA-Public Use
  Company Number: TR-RANBAXY-2012RR-58702

PATIENT
  Age: 50 Year
  Sex: Male

DRUGS (3)
  1. RANITIDINE [Suspect]
     Dosage: 50 MG OVER 10 MINUTES
     Route: 042
  2. RANITIDINE [Suspect]
     Indication: HYPERCHLORHYDRIA
  3. RANITIDINE [Suspect]
     Indication: DYSPEPSIA
     Route: 048

REACTIONS (1)
  - ANAPHYLACTIC REACTION [None]
